FAERS Safety Report 4421778-7 (Version None)
Quarter: 2004Q3

REPORT INFORMATION
  Report Type: 
  Country: None (occurrence: None)
  Receive Date: 20040806
  Receipt Date: 20040720
  Transmission Date: 20050211
  Serious: Yes (Hospitalization, Disabling, Other)
  Sender: FDA-Public Use
  Company Number: USA040771721

PATIENT
  Age: 27 Year
  Sex: Male
  Weight: 123 kg

DRUGS (3)
  1. KEFZOL [Suspect]
     Indication: SINUSITIS
     Dosage: 500 MG
     Dates: start: 20020901, end: 20020901
  2. CIPRO [Concomitant]
  3. TEQUIN [Concomitant]

REACTIONS (10)
  - DERMATOMYOSITIS [None]
  - DYSSTASIA [None]
  - ERYTHEMA [None]
  - FALL [None]
  - INJECTION SITE INDURATION [None]
  - INJECTION SITE PAIN [None]
  - LACRIMATION INCREASED [None]
  - PAIN [None]
  - RHABDOMYOLYSIS [None]
  - WEIGHT DECREASED [None]
